FAERS Safety Report 6637646-6 (Version None)
Quarter: 2010Q1

REPORT INFORMATION
  Report Type: 
  Country: None (occurrence: None)
  Receive Date: 20100301
  Receipt Date: 20091026
  Transmission Date: 20100710
  Serious: Yes (Death)
  Sender: FDA-Public Use
  Company Number: RB-23224-2009

PATIENT
  Age: 29 Year
  Sex: Male

DRUGS (2)
  1. SUBOXONE [Suspect]
     Indication: DRUG DEPENDENCE
     Dosage: 24 MG SUBLINGUAL
     Route: 060
     Dates: start: 20090707, end: 20091025
  2. ADDERALL 30 [Concomitant]

REACTIONS (1)
  - ROAD TRAFFIC ACCIDENT [None]
